FAERS Safety Report 9819562 (Version 1)
Quarter: 2014Q1

REPORT INFORMATION
  Report Type: Report from Study
  Country: BR (occurrence: BR)
  Receive Date: 20140115
  Receipt Date: 20140115
  Transmission Date: 20141002
  Serious: Yes (Other)
  Sender: FDA-Public Use
  Company Number: PHHY2014BR003956

PATIENT
  Sex: Female
  Weight: 49 kg

DRUGS (5)
  1. ACLASTA [Suspect]
     Indication: OSTEOPOROSIS
     Dosage: 5 MG, UNK
     Route: 042
     Dates: start: 201303
  2. GLIFAGE [Concomitant]
     Dosage: UNK UKN, UNK
     Dates: start: 201310
  3. TRAYENTA [Concomitant]
     Dosage: UNK UKN, UNK
     Dates: start: 201310
  4. LEVEMIR [Concomitant]
     Dosage: UNK UKN, UNK
     Dates: start: 201302
  5. NOVORAPID [Concomitant]
     Dosage: UNK UKN, UNK
     Dates: start: 201311

REACTIONS (2)
  - Gastric cancer [Recovering/Resolving]
  - Metastases to liver [Recovering/Resolving]
